FAERS Safety Report 16991164 (Version 2)
Quarter: 2019Q4

REPORT INFORMATION
  Report Type: Spontaneous
  Country: JP (occurrence: JP)
  Receive Date: 20191104
  Receipt Date: 20191206
  Transmission Date: 20200122
  Serious: Yes (Death, Hospitalization)
  Sender: FDA-Public Use
  Company Number: JP-B.I. PHARMACEUTICALS,INC./RIDGEFIELD-2019-BI-110970

PATIENT
  Age: 73 Year
  Sex: Female

DRUGS (2)
  1. GILOTRIF [Suspect]
     Active Substance: AFATINIB
     Indication: EGFR GENE MUTATION
  2. GILOTRIF [Suspect]
     Active Substance: AFATINIB
     Indication: LUNG ADENOCARCINOMA STAGE IV
     Route: 048

REACTIONS (5)
  - Lung adenocarcinoma [Fatal]
  - Metastases to retroperitoneum [Fatal]
  - Nausea [Unknown]
  - Cerebral infarction [Fatal]
  - Vomiting [Unknown]

NARRATIVE: CASE EVENT DATE: 201806
